FAERS Safety Report 6071632-2 (Version None)
Quarter: 2009Q1

REPORT INFORMATION
  Report Type: 
  Country: None (occurrence: None)
  Receive Date: 20090209
  Receipt Date: 20090209
  Transmission Date: 20090719
  Serious: Yes (Other)
  Sender: FDA-Public Use
  Company Number: None

PATIENT
  Sex: Female
  Weight: 71.2147 kg

DRUGS (1)
  1. MELOXICAM [Suspect]
     Indication: SWELLING
     Dosage: 1 TABLET EVERY DAY MOUTH
     Route: 048
     Dates: start: 20081211, end: 20081227

REACTIONS (4)
  - DERMATITIS CONTACT [None]
  - RASH PRURITIC [None]
  - SOMNOLENCE [None]
  - WEIGHT INCREASED [None]
